FAERS Safety Report 13190653 (Version 2)
Quarter: 2017Q1

REPORT INFORMATION
  Report Type: Spontaneous
  Country: US (occurrence: US)
  Receive Date: 20170206
  Receipt Date: 20170210
  Transmission Date: 20170428
  Serious: Yes (Hospitalization)
  Sender: FDA-Public Use
  Company Number: US-ACTELION-A-US2017-149412

PATIENT
  Age: 60 Year
  Sex: Male
  Weight: 117.91 kg

DRUGS (2)
  1. OPSUMIT [Suspect]
     Active Substance: MACITENTAN
     Indication: PULMONARY ARTERIAL HYPERTENSION
     Dosage: UNK
     Route: 048
     Dates: start: 20160415
  2. ADCIRCA [Concomitant]
     Active Substance: TADALAFIL

REACTIONS (2)
  - Cardiac operation [Recovering/Resolving]
  - Pericardial effusion [Unknown]
